FAERS Safety Report 6794822-X (Version None)
Quarter: 2010Q2

REPORT INFORMATION
  Report Type: 
  Country: None (occurrence: None)
  Receive Date: 20100624
  Receipt Date: 20100624
  Transmission Date: 20101027
  Serious: Yes (Other)
  Sender: FDA-Public Use
  Company Number: None

PATIENT
  Sex: Female
  Weight: 90.7194 kg

DRUGS (1)
  1. PHENERGAN [Suspect]
     Indication: NAUSEA
     Dosage: ONCE IV
     Route: 042
     Dates: start: 20100224

REACTIONS (2)
  - CONVULSION [None]
  - INCORRECT DRUG ADMINISTRATION RATE [None]
